FAERS Safety Report 11943205 (Version 1)
Quarter: 2016Q1

REPORT INFORMATION
  Report Type: Spontaneous
  Country: US (occurrence: US)
  Receive Date: 20160125
  Receipt Date: 20160125
  Transmission Date: 20160526
  Serious: No
  Sender: FDA-Public Use
  Company Number: US-UNITED THERAPEUTICS-UNT-2015-009677

PATIENT
  Age: 64 Year
  Sex: Female
  Weight: 82.99 kg

DRUGS (6)
  1. LETAIRIS [Suspect]
     Active Substance: AMBRISENTAN
     Indication: PRODUCT USED FOR UNKNOWN INDICATION
     Dosage: 10 MG, UNK
     Route: 065
  2. ORENITRAM [Suspect]
     Active Substance: TREPROSTINIL
     Indication: PULMONARY HYPERTENSION
     Dosage: 4 MG, TID
     Route: 048
     Dates: start: 20141016, end: 20150813
  3. ORENITRAM [Suspect]
     Active Substance: TREPROSTINIL
     Dosage: UNK
     Route: 048
  4. REVATIO [Concomitant]
     Active Substance: SILDENAFIL CITRATE
     Indication: PRODUCT USED FOR UNKNOWN INDICATION
  5. ORENITRAM [Suspect]
     Active Substance: TREPROSTINIL
     Indication: PULMONARY ARTERIAL HYPERTENSION
     Dosage: UNK
     Route: 048
  6. LETAIRIS [Suspect]
     Active Substance: AMBRISENTAN
     Dosage: 5 MG,
     Route: 065

REACTIONS (10)
  - Face oedema [Not Recovered/Not Resolved]
  - Headache [Recovered/Resolved]
  - Feeling of body temperature change [Recovered/Resolved]
  - Ocular hyperaemia [Not Recovered/Not Resolved]
  - Eye oedema [Not Recovered/Not Resolved]
  - Chest pain [Recovered/Resolved]
  - Vitamin D deficiency [Unknown]
  - Vomiting [Recovered/Resolved]
  - Nasal congestion [Recovered/Resolved]
  - Oedema peripheral [Not Recovered/Not Resolved]

NARRATIVE: CASE EVENT DATE: 20150809
